FAERS Safety Report 4627744-0 (Version None)
Quarter: 2005Q2

REPORT INFORMATION
  Report Type: 
  Country: None (occurrence: None)
  Receive Date: 20050401
  Receipt Date: 20050322
  Transmission Date: 20051028
  Serious: Yes (Disabling)
  Sender: FDA-Public Use
  Company Number: 141651USA

PATIENT
  Age: 30 Year
  Sex: Female

DRUGS (3)
  1. PIMOZIDE [Suspect]
  2. ZOTEPINE [Suspect]
  3. QUETIAPINE [Suspect]
     Dates: start: 20020401, end: 20020501

REACTIONS (2)
  - DYSTONIA [None]
  - GAIT DISTURBANCE [None]
